FAERS Safety Report 5628344-6 (Version None)
Quarter: 2008Q1

REPORT INFORMATION
  Report Type: 
  Country: None (occurrence: None)
  Receive Date: 20080215
  Receipt Date: 20080205
  Transmission Date: 20080703
  Serious: Yes (Death)
  Sender: FDA-Public Use
  Company Number: US-SANOFI-SYNTHELABO-A03200706542

PATIENT
  Age: 175 Day
  Sex: Male
  Weight: 8.44 kg

DRUGS (1)
  1. AMBIEN [Suspect]
     Indication: DRUG USE FOR UNKNOWN INDICATION
     Dosage: UNK
     Route: 048

REACTIONS (3)
  - DEATH [None]
  - DRUG LEVEL INCREASED [None]
  - INTENTIONAL DRUG MISUSE [None]
